FAERS Safety Report 19703055 (Version 1)
Quarter: 2021Q3

REPORT INFORMATION
  Report Type: Spontaneous
  Country: US (occurrence: US)
  Receive Date: 20210816
  Receipt Date: 20210816
  Transmission Date: 20211014
  Serious: Yes (Other)
  Sender: FDA-Public Use
  Company Number: US-ROCHE-2884639

PATIENT
  Age: 79 Year
  Sex: Male
  Weight: 86.08 kg

DRUGS (10)
  1. AVASTIN [Suspect]
     Active Substance: BEVACIZUMAB
     Indication: PRODUCT USED FOR UNKNOWN INDICATION
     Route: 048
  2. AMLODIPINE BESYLATE;BENAZEPRIL [Concomitant]
  3. BISOPROLOL [Concomitant]
     Active Substance: BISOPROLOL
  4. BENAZEPRIL HYDROCHLORIDE. [Concomitant]
     Active Substance: BENAZEPRIL HYDROCHLORIDE
  5. DOXAZOSIN [Concomitant]
     Active Substance: DOXAZOSIN MESYLATE
  6. FINASTERIDE. [Concomitant]
     Active Substance: FINASTERIDE
  7. DOXAZOSIN MESYLATE. [Concomitant]
     Active Substance: DOXAZOSIN MESYLATE
  8. LONSURF [Suspect]
     Active Substance: TIPIRACIL HYDROCHLORIDE\TRIFLURIDINE
     Indication: COLON CANCER
     Route: 048
     Dates: start: 20210324, end: 20210324
  9. AMLODIPINE [Concomitant]
     Active Substance: AMLODIPINE BESYLATE
  10. ELIQUIS [Concomitant]
     Active Substance: APIXABAN

REACTIONS (20)
  - Faeces soft [Not Recovered/Not Resolved]
  - Chronic kidney disease [Unknown]
  - Taste disorder [Recovered/Resolved]
  - Vomiting [Unknown]
  - Pyrexia [Unknown]
  - Diarrhoea [Recovering/Resolving]
  - Fatigue [Unknown]
  - Decreased appetite [Unknown]
  - Faeces soft [Recovered/Resolved]
  - Neutropenia [Unknown]
  - Anaemia [Unknown]
  - Alopecia [Not Recovered/Not Resolved]
  - Thrombocytopenia [Unknown]
  - Nausea [Recovering/Resolving]
  - Hair texture abnormal [Not Recovered/Not Resolved]
  - Asthenia [Unknown]
  - Stomatitis [Unknown]
  - Pulmonary embolism [Unknown]
  - Arthritis [Recovering/Resolving]
  - Arthralgia [Unknown]
